FAERS Safety Report 7482115-7 (Version None)
Quarter: 2011Q2

REPORT INFORMATION
  Report Type: 
  Country: None (occurrence: None)
  Receive Date: 20110516
  Receipt Date: 20110506
  Transmission Date: 20111010
  Serious: Yes (Hospitalization, Other)
  Sender: FDA-Public Use
  Company Number: US-ASTRAZENECA-2011SE27029

PATIENT
  Age: 44 Year
  Sex: Female
  Weight: 93 kg

DRUGS (6)
  1. SEROQUEL [Suspect]
     Indication: OBSESSIVE-COMPULSIVE DISORDER
     Route: 048
     Dates: start: 20020101
  2. CELEBREX [Concomitant]
  3. TRAMADONE [Concomitant]
  4. SEROQUEL [Suspect]
     Indication: PAIN
     Route: 048
     Dates: start: 20020101
  5. METHADONE HCL [Concomitant]
  6. LISINOPRIL [Concomitant]
     Route: 048

REACTIONS (3)
  - HYSTERECTOMY [None]
  - OFF LABEL USE [None]
  - CERVIX CARCINOMA [None]
